FAERS Safety Report 6953502-8 (Version None)
Quarter: 2010Q3

REPORT INFORMATION
  Report Type: 
  Country: None (occurrence: None)
  Receive Date: 20100829
  Receipt Date: 20100615
  Transmission Date: 20110219
  Serious: No
  Sender: FDA-Public Use
  Company Number: US-ABBOTT-10P-163-0652623-00

PATIENT
  Sex: Female
  Weight: 71.278 kg

DRUGS (1)
  1. NIASPAN [Suspect]
     Indication: LIPOPROTEIN (A) DECREASED
     Route: 058
     Dates: start: 20100602

REACTIONS (4)
  - CHILLS [None]
  - ERYTHEMA [None]
  - FEELING HOT [None]
  - FLUSHING [None]
